FAERS Safety Report 4771241-9 (Version None)
Quarter: 2005Q3

REPORT INFORMATION
  Report Type: 
  Country: None (occurrence: None)
  Receive Date: 20050912
  Receipt Date: 20050630
  Transmission Date: 20060218
  Serious: No
  Sender: FDA-Public Use
  Company Number: 2005-01426

PATIENT
  Sex: 0

DRUGS (2)
  1. VELCADE [Suspect]
     Indication: MULTIPLE MYELOMA
  2. DOXIL [Concomitant]

REACTIONS (2)
  - FOLLICULITIS [None]
  - SUBCUTANEOUS ABSCESS [None]
